FAERS Safety Report 8072909-1 (Version None)
Quarter: 2012Q1

REPORT INFORMATION
  Report Type: 
  Country: None (occurrence: None)
  Receive Date: 20120126
  Receipt Date: 20120123
  Transmission Date: 20120608
  Serious: No
  Sender: FDA-Public Use
  Company Number: US-PFIZER INC-2011117518

PATIENT
  Sex: Female

DRUGS (3)
  1. CHANTIX [Suspect]
     Dosage: UNK
  2. CHANTIX [Suspect]
     Dosage: 1 MG, DAILY
  3. CHANTIX [Suspect]
     Dosage: 1 MG, 2X/DAY

REACTIONS (1)
  - ABDOMINAL DISCOMFORT [None]
